FAERS Safety Report 5195595-7 (Version None)
Quarter: 2006Q4

REPORT INFORMATION
  Report Type: 
  Country: None (occurrence: None)
  Receive Date: 20061226
  Receipt Date: 20061226
  Transmission Date: 20070319
  Serious: Yes (Life-Threatening, Hospitalization)
  Sender: FDA-Public Use
  Company Number: None

PATIENT
  Age: 43 Year
  Sex: Female
  Weight: 64 kg

DRUGS (1)
  1. TELITHROMYCIN UNKNOWN [Suspect]
     Indication: PERTUSSIS
     Dates: start: 20061213, end: 20061218

REACTIONS (5)
  - ABDOMINAL PAIN [None]
  - ACUTE HEPATIC FAILURE [None]
  - COMPUTERISED TOMOGRAM ABNORMAL [None]
  - OLIGURIA [None]
  - RENAL FAILURE [None]
